FAERS Safety Report 20854487 (Version 1)
Quarter: 2022Q2

REPORT INFORMATION
  Report Type: Report from Study
  Country: CA (occurrence: None)
  Receive Date: 20220520
  Receipt Date: 20220520
  Transmission Date: 20220721
  Serious: Yes (Death)
  Sender: FDA-Public Use
  Company Number: 2022A188431

PATIENT
  Age: 21269 Day
  Sex: Male

DRUGS (1)
  1. TAGRISSO [Suspect]
     Active Substance: OSIMERTINIB
     Indication: Non-small cell lung cancer metastatic
     Route: 048
     Dates: start: 20201218, end: 2022

REACTIONS (1)
  - Death [Fatal]

NARRATIVE: CASE EVENT DATE: 20220422
